APPROVED DRUG PRODUCT: TRIAMINIC-12
Active Ingredient: CHLORPHENIRAMINE MALEATE; PHENYLPROPANOLAMINE HYDROCHLORIDE
Strength: 12MG;75MG
Dosage Form/Route: TABLET, EXTENDED RELEASE;ORAL
Application: N018115 | Product #001
Applicant: NOVARTIS PHARMACEUTICALS CORP
Approved: Approved Prior to Jan 1, 1982 | RLD: No | RS: No | Type: DISCN